FAERS Safety Report 8196625-0 (Version None)
Quarter: 2012Q1

REPORT INFORMATION
  Report Type: 
  Country: None (occurrence: None)
  Receive Date: 20120309
  Receipt Date: 20120229
  Transmission Date: 20120608
  Serious: Yes (Other)
  Sender: FDA-Public Use
  Company Number: US-SANOFI-AVENTIS-2012SA006469

PATIENT
  Age: 86 Year
  Sex: Female

DRUGS (6)
  1. MULTAQ [Suspect]
     Route: 048
     Dates: start: 20120128
  2. CORTISONE ACETATE [Concomitant]
     Indication: BURSITIS
  3. DIGOXIN [Concomitant]
     Dosage: DIGOXIN 0.125 MG CUT TO HALF TABLET DAILY
  4. COUMADIN [Concomitant]
  5. MULTAQ [Suspect]
     Indication: ATRIAL FIBRILLATION
     Route: 048
     Dates: start: 20120128
  6. DIGOXIN [Concomitant]

REACTIONS (8)
  - RENAL DISORDER [None]
  - ATRIAL FIBRILLATION [None]
  - FATIGUE [None]
  - HEADACHE [None]
  - THERAPEUTIC RESPONSE UNEXPECTED [None]
  - SENSATION OF HEAVINESS [None]
  - ABDOMINAL DISCOMFORT [None]
  - DYSPNOEA [None]
